FAERS Safety Report 26179033 (Version 1)
Quarter: 2025Q4

REPORT INFORMATION
  Report Type: Spontaneous
  Country: US (occurrence: US)
  Receive Date: 20251219
  Receipt Date: 20251219
  Transmission Date: 20260118
  Serious: Yes (Other)
  Sender: RANBAXY
  Company Number: US-SUN PHARMACEUTICAL INDUSTRIES INC-2025R1-542460

PATIENT
  Age: 54 Year
  Sex: Male

DRUGS (3)
  1. DOXORUBICIN [Suspect]
     Active Substance: DOXORUBICIN
     Indication: Follicular thyroid cancer
     Dosage: UNKNOWN
     Route: 065
  2. MITOMYCIN C [Suspect]
     Active Substance: MITOMYCIN
     Indication: Follicular thyroid cancer
     Dosage: UNKNOWN
     Route: 065
  3. Embozene microspheres [Concomitant]
     Indication: Follicular thyroid cancer
     Dosage: UNK
     Route: 065

REACTIONS (2)
  - Myelitis transverse [Recovering/Resolving]
  - Toxicity to various agents [Unknown]
